FAERS Safety Report 15117656 (Version 1)
Quarter: 2018Q3

REPORT INFORMATION
  Report Type: Spontaneous
  Country: DK (occurrence: DK)
  Receive Date: 20180707
  Receipt Date: 20180707
  Transmission Date: 20181010
  Serious: Yes (Hospitalization)
  Sender: FDA-Public Use
  Company Number: DK-ABBVIE-18K-044-2410263-00

PATIENT
  Age: 75 Year
  Sex: Female

DRUGS (3)
  1. VENCLYXTO [Suspect]
     Active Substance: VENETOCLAX
     Indication: CHRONIC LYMPHOCYTIC LEUKAEMIA
     Dosage: STYRKE: 100 MG
     Route: 048
     Dates: start: 201802, end: 20180504
  2. PINEX [Concomitant]
     Active Substance: ACETAMINOPHEN
     Indication: PAIN
     Dosage: 2 TABLET
     Route: 048
     Dates: start: 20180219
  3. PRIVIGEN [Concomitant]
     Active Substance: HUMAN IMMUNOGLOBULIN G
     Indication: IMMUNODEFICIENCY
     Dates: start: 20180228

REACTIONS (6)
  - Arthralgia [Recovering/Resolving]
  - Headache [Recovering/Resolving]
  - Joint warmth [Recovering/Resolving]
  - Joint range of motion decreased [Recovering/Resolving]
  - Joint swelling [Recovering/Resolving]
  - Erythema [Recovering/Resolving]

NARRATIVE: CASE EVENT DATE: 201803
